FAERS Safety Report 7887733 (Version 5)
Quarter: 2013Q3

REPORT INFORMATION
  Report Type: Spontaneous
  Country: US (occurrence: US)
  Receive Date: 20110406
  Receipt Date: 20130808
  Transmission Date: 20140515
  Serious: Yes (Hospitalization)
  Sender: FDA-Public Use
  Company Number: US-JNJFOC-20110401103

PATIENT
  Age: 16 Year
  Sex: Female
  Weight: 68 kg

DRUGS (4)
  1. IBUPROFEN [Suspect]
     Indication: SICKLE CELL ANAEMIA
     Route: 048
     Dates: end: 20110308
  2. MS CONTIN [Suspect]
     Indication: SICKLE CELL ANAEMIA
     Route: 048
     Dates: end: 20110308
  3. INVESTIGATIONAL DRUG [Suspect]
     Indication: IMMUNISATION
     Route: 030
     Dates: start: 20101110, end: 20101110
  4. FOLIC ACID [Concomitant]
     Indication: SICKLE CELL ANAEMIA
     Route: 065
     Dates: start: 1995

REACTIONS (7)
  - Overdose [Recovered/Resolved]
  - Unresponsive to stimuli [Recovered/Resolved]
  - Acute chest syndrome [Recovered/Resolved]
  - Respiratory failure [Recovered/Resolved]
  - Hypocalcaemia [Recovered/Resolved]
  - Renal failure [Recovered/Resolved]
  - Suicide attempt [Recovered/Resolved]
